FAERS Safety Report 5844310-X (Version None)
Quarter: 2008Q3

REPORT INFORMATION
  Report Type: 
  Country: None (occurrence: None)
  Receive Date: 20080813
  Receipt Date: 20080806
  Transmission Date: 20090109
  Serious: Yes (Hospitalization)
  Sender: FDA-Public Use
  Company Number: US-BOEHRINGER INGELHEIM GMBH, GERMANY-2008-BP-12662BP

PATIENT
  Sex: Female

DRUGS (1)
  1. AGGRENOX [Suspect]

REACTIONS (1)
  - CHEST PAIN [None]
